FAERS Safety Report 10651834 (Version 1)
Quarter: 2014Q4

REPORT INFORMATION
  Report Type: Spontaneous
  Country: NL (occurrence: NL)
  Receive Date: 20141215
  Receipt Date: 20141215
  Transmission Date: 20150529
  Serious: Yes (Other)
  Sender: FDA-Public Use
  Company Number: NL-TEVA-527644ISR

PATIENT
  Age: 56 Year
  Sex: Female
  Weight: 130 kg

DRUGS (7)
  1. FUROSEMIDE TABLET 40MG [Concomitant]
     Active Substance: FUROSEMIDE
     Dosage: 40 MILLIGRAM DAILY; ONCE DAILY ONE PIECE
     Route: 048
     Dates: start: 2004
  2. ACENOCOUMAROL TABLET 1MG [Concomitant]
     Active Substance: ACENOCOUMAROL
     Dosage: 1 MILLIGRAM DAILY; TWICE DAILY 2.5 PIECE
     Route: 048
     Dates: start: 2004
  3. ALFACALCIDOL CAPSULE 0,25UG [Concomitant]
     Dosage: 50 MICROGRAM DAILY; ONCE DAILY TWO PIECES
     Route: 048
     Dates: start: 201211
  4. HYDROXOCOBALAMINE INJVLST  500UG/ML [Concomitant]
     Dosage: ONCE EVERY QUARTER
     Route: 048
     Dates: start: 2010
  5. ATENOLOL TABLET  50MG [Concomitant]
     Dosage: 50 MILLIGRAM DAILY; ONCE DAILY ONE PIECE
     Route: 048
     Dates: start: 2004
  6. METFORMIN [Suspect]
     Active Substance: METFORMIN HYDROCHLORIDE
     Indication: TYPE 2 DIABETES MELLITUS
     Dosage: 1000 MILLIGRAM DAILY; ONCE DAILY TWO PIECES
     Route: 048
     Dates: start: 2005
  7. THYRAX DUOTAB TABLET 0,025MG [Interacting]
     Active Substance: LEVOTHYROXINE
     Indication: HYPOTHYROIDISM
     Dosage: 50 MICROGRAM DAILY; TWICE DAILY ONE PIECE
     Route: 048
     Dates: start: 201209

REACTIONS (14)
  - Paraesthesia [Not Recovered/Not Resolved]
  - Hypoaesthesia [Not Recovered/Not Resolved]
  - Blood glucose increased [Not Recovered/Not Resolved]
  - Gastric dilatation [Not Recovered/Not Resolved]
  - Product quality issue [Recovered/Resolved with Sequelae]
  - Disturbance in attention [Not Recovered/Not Resolved]
  - Tinnitus [Not Recovered/Not Resolved]
  - Back pain [Recovered/Resolved with Sequelae]
  - Weight increased [Not Recovered/Not Resolved]
  - Dry eye [Recovered/Resolved with Sequelae]
  - Pain [Not Recovered/Not Resolved]
  - Musculoskeletal stiffness [Not Recovered/Not Resolved]
  - Fatigue [Not Recovered/Not Resolved]
  - Vitreous detachment [Not Recovered/Not Resolved]

NARRATIVE: CASE EVENT DATE: 201210
